FAERS Safety Report 14194892 (Version 8)
Quarter: 2019Q1

REPORT INFORMATION
  Report Type: Report from Study
  Country: JP (occurrence: JP)
  Receive Date: 20171116
  Receipt Date: 20190208
  Transmission Date: 20190417
  Serious: Yes (Other)
  Sender: FDA-Public Use
  Company Number: JP-ACTELION-A-CH2017-162136

PATIENT
  Age: 34 Year
  Sex: Female

DRUGS (18)
  1. JUVELA N [Concomitant]
     Active Substance: TOCOPHERYL NICOTINATE, D-.ALPHA.
  2. LEUCOVORIN. [Concomitant]
     Active Substance: LEUCOVORIN
     Dosage: 20 MG, QD
  3. RHEUMATREX [Suspect]
     Active Substance: METHOTREXATE SODIUM
     Indication: MIXED CONNECTIVE TISSUE DISEASE
     Dosage: 6 MG, Q1WEEK
     Route: 048
     Dates: start: 201010, end: 20171027
  4. AMBRISENTAN [Concomitant]
     Active Substance: AMBRISENTAN
  5. PREDNISOLONE. [Concomitant]
     Active Substance: PREDNISOLONE
     Dosage: 10 MG, QD
  6. CINAL [Concomitant]
     Active Substance: ASCORBIC ACID\CALCIUM PANTOTHENATE
  7. OPSUMIT [Suspect]
     Active Substance: MACITENTAN
     Indication: PULMONARY ARTERIAL HYPERTENSION
     Dosage: 10 MG, QD
     Route: 048
     Dates: start: 20160623
  8. ANPLAG [Concomitant]
     Active Substance: SARPOGRELATE
  9. CARELOAD [Concomitant]
     Active Substance: BERAPROST SODIUM
  10. ADCIRCA [Concomitant]
     Active Substance: TADALAFIL
  11. PREDNISOLONE. [Concomitant]
     Active Substance: PREDNISOLONE
     Dosage: UNK
  12. GASTER [Concomitant]
     Active Substance: FAMOTIDINE
  13. ALFAROL [Concomitant]
     Active Substance: ALFACALCIDOL
  14. LEUCOVORIN. [Concomitant]
     Active Substance: LEUCOVORIN
     Dosage: UNK
  15. BONOTEO [Concomitant]
     Active Substance: MINODRONIC ACID
  16. VOLIBRIS [Concomitant]
     Active Substance: AMBRISENTAN
  17. PREDNISOLONE. [Concomitant]
     Active Substance: PREDNISOLONE
     Dosage: 20 MG, QD
  18. IMURAN [Concomitant]
     Active Substance: AZATHIOPRINE

REACTIONS (1)
  - Platelet count decreased [Recovering/Resolving]

NARRATIVE: CASE EVENT DATE: 20171027
